FAERS Safety Report 8601941-1 (Version None)
Quarter: 2012Q3

REPORT INFORMATION
  Report Type: 
  Country: None (occurrence: None)
  Receive Date: 20120817
  Receipt Date: 20120613
  Transmission Date: 20120928
  Serious: No
  Sender: FDA-Public Use
  Company Number: US-BRISTOL-MYERS SQUIBB COMPANY-16660755

PATIENT
  Age: 55 Year
  Sex: Male

DRUGS (5)
  1. SPRYCEL [Suspect]
  2. ZYLOPRIM [Concomitant]
  3. FLEXERIL [Concomitant]
  4. AMBIEN [Concomitant]
  5. XANAX [Concomitant]

REACTIONS (3)
  - JOINT SWELLING [None]
  - RASH ERYTHEMATOUS [None]
  - HEADACHE [None]
